FAERS Safety Report 20476186 (Version 1)
Quarter: 2022Q1

REPORT INFORMATION
  Report Type: Report from Study
  Country: US (occurrence: US)
  Receive Date: 20220215
  Receipt Date: 20220215
  Transmission Date: 20220423
  Serious: No
  Sender: FDA-Public Use
  Company Number: US-TAKEDA-US202026801

PATIENT
  Sex: Female

DRUGS (1)
  1. HUMAN IMMUNOGLOBULIN G [Suspect]
     Active Substance: HUMAN IMMUNOGLOBULIN G
     Indication: Primary immunodeficiency syndrome
     Dosage: UNK
     Route: 042

REACTIONS (8)
  - Sleep disorder [Unknown]
  - Memory impairment [Unknown]
  - Infusion related reaction [Unknown]
  - Illness [Unknown]
  - Migraine [Recovered/Resolved]
  - Proteinuria [Unknown]
  - Cough [Unknown]
  - Headache [Unknown]
